FAERS Safety Report 21045262 (Version 1)
Quarter: 2022Q3

REPORT INFORMATION
  Report Type: Spontaneous
  Country: US (occurrence: US)
  Receive Date: 20220705
  Receipt Date: 20220705
  Transmission Date: 20221027
  Serious: No
  Sender: FDA-Public Use
  Company Number: US-drreddys-SPO/USA/22/0151648

PATIENT
  Age: 25 Year
  Sex: Female

DRUGS (2)
  1. ZENATANE [Suspect]
     Active Substance: ISOTRETINOIN
     Indication: Product used for unknown indication
     Dosage: RMA ISSUE DATE: 14 MARCH 2022 04:49:39 PM, 11 APRIL 2022 03:34:28 PM
  2. ZENATANE [Suspect]
     Active Substance: ISOTRETINOIN
     Dosage: RMA ISSUE DATE: 14 FEBRUARY 2022 04:08:11 PM

REACTIONS (1)
  - Adverse event [Unknown]
